FAERS Safety Report 6093565-8 (Version None)
Quarter: 2009Q1

REPORT INFORMATION
  Report Type: 
  Country: None (occurrence: None)
  Receive Date: 20090226
  Receipt Date: 20090126
  Transmission Date: 20090719
  Serious: No
  Sender: FDA-Public Use
  Company Number: US-BAYER-200913250NA

PATIENT
  Sex: Female

DRUGS (1)
  1. YAZ [Suspect]
     Route: 048
     Dates: start: 20080901

REACTIONS (2)
  - ABNORMAL WITHDRAWAL BLEEDING [None]
  - INAPPROPRIATE SCHEDULE OF DRUG ADMINISTRATION [None]
